FAERS Safety Report 17811687 (Version 2)
Quarter: 2020Q2

REPORT INFORMATION
  Report Type: Report from Study
  Country: US (occurrence: US)
  Receive Date: 20200521
  Receipt Date: 20200527
  Transmission Date: 20200714
  Serious: Yes (Death)
  Sender: FDA-Public Use
  Company Number: US-PFIZER INC-2020196242

PATIENT
  Age: 1 Year
  Sex: Male

DRUGS (7)
  1. CISPLATIN. [Suspect]
     Active Substance: CISPLATIN
     Indication: PINEALOBLASTOMA
     Dosage: UNK, CYCLIC (CYCLES 1, 3)
     Route: 042
  2. CYCLOPHOSPHAMIDE. [Suspect]
     Active Substance: CYCLOPHOSPHAMIDE
     Indication: PINEALOBLASTOMA
     Dosage: UNK, CYCLIC (CYCLES 1, 2, 3)
     Route: 042
  3. VINCRISTINE SULFATE. [Suspect]
     Active Substance: VINCRISTINE SULFATE
     Indication: PINEALOBLASTOMA
     Dosage: UNK, CYCLIC (INDUCTION CYCLES 1, 2,3)
  4. ETOPOSIDE. [Suspect]
     Active Substance: ETOPOSIDE
     Dosage: UNK, CYCLIC (CYCLE 2)
     Route: 048
  5. METHOTREXATE SODIUM. [Suspect]
     Active Substance: METHOTREXATE SODIUM
     Indication: PINEALOBLASTOMA
     Dosage: HIGH DOSE, CYCLIC (INDUCTION CYCLES 1, 3)
  6. ETOPOSIDE. [Suspect]
     Active Substance: ETOPOSIDE
     Indication: PINEALOBLASTOMA
     Dosage: UNK, CYCLIC (CYCLES 1, 3)
     Route: 042
  7. TEMOZOLOMIDE. [Suspect]
     Active Substance: TEMOZOLOMIDE
     Indication: PINEALOBLASTOMA
     Dosage: UNK, CYCLIC (CYCLE 2)
     Route: 048

REACTIONS (1)
  - Sepsis [Fatal]
